FAERS Safety Report 5010436-6 (Version None)
Quarter: 2006Q2

REPORT INFORMATION
  Report Type: 
  Country: None (occurrence: None)
  Receive Date: 20060523
  Receipt Date: 20060510
  Transmission Date: 20061013
  Serious: Yes (Hospitalization, Other)
  Sender: FDA-Public Use
  Company Number: 2006062616

PATIENT
  Age: 80 Year
  Sex: Female

DRUGS (7)
  1. LYRICA [Suspect]
     Indication: POST HERPETIC NEURALGIA
     Dosage: 150 MG (75 MG, 2 IN 1 D), ORAL
     Route: 048
     Dates: start: 20060502
  2. MEBEVERINE HYDROCHLORIDE                     (MEBEVERINE HYDROCHLORIDE [Concomitant]
  3. ALDACTAZINE                             (ALTIZIDE, SPIRONOLACTONE) [Concomitant]
  4. COVERSYL                        (PERINDOPRIL) [Concomitant]
  5. FOSAMAX [Suspect]
  6. HALOPERIDOL [Concomitant]
  7. MEDROL ACETATE [Concomitant]

REACTIONS (3)
  - DIPLOPIA [None]
  - GAIT DISTURBANCE [None]
  - JOINT DISLOCATION [None]
